FAERS Safety Report 11457675 (Version 1)
Quarter: 2015Q3

REPORT INFORMATION
  Report Type: Spontaneous
  Country: US (occurrence: US)
  Receive Date: 20150904
  Receipt Date: 20150904
  Transmission Date: 20151125
  Serious: No
  Sender: FDA-Public Use
  Company Number: US-LUNDBECK-DKLU2002131

PATIENT
  Age: 46 Year
  Sex: Female

DRUGS (3)
  1. NORTHERA [Suspect]
     Active Substance: DROXIDOPA
     Indication: PRODUCT USED FOR UNKNOWN INDICATION
     Dates: start: 20150717
  2. NORTHERA [Suspect]
     Active Substance: DROXIDOPA
     Dosage: SATURDAY AND SUNDAY
     Route: 065
     Dates: start: 201507
  3. NORTHERA [Suspect]
     Active Substance: DROXIDOPA
     Dosage: SATURDAY AND SUNDAY
     Dates: start: 20150720

REACTIONS (2)
  - Intentional product use issue [Unknown]
  - Malaise [Unknown]

NARRATIVE: CASE EVENT DATE: 201507
